FAERS Safety Report 4598898-X (Version None)
Quarter: 2005Q1

REPORT INFORMATION
  Report Type: 
  Country: None (occurrence: None)
  Receive Date: 20050302
  Receipt Date: 20041220
  Transmission Date: 20050727
  Serious: Yes (Disabling)
  Sender: FDA-Public Use
  Company Number: 1717

PATIENT
  Age: 35 Year
  Sex: Female
  Weight: 47.1741 kg

DRUGS (5)
  1. AVINZA [Suspect]
     Indication: PAIN
  2. CARISOPRODOL [Concomitant]
  3. CLONIDINE [Concomitant]
  4. IMMEDIATE-RELEASE MORPHINE SULFATE [Concomitant]
  5. PAROXETINE HCL [Concomitant]

REACTIONS (1)
  - POLLAKIURIA [None]
